FAERS Safety Report 8730463 (Version 3)
Quarter: 2012Q4

REPORT INFORMATION
  Report Type: 
  Country: PL (occurrence: PL)
  Receive Date: 20120817
  Receipt Date: 20120912
  Transmission Date: 20130627
  Serious: Yes (Death)
  Sender: FDA-Public Use
  Company Number: PL-ROCHE-1103018

PATIENT
  Age: 60 Year
  Sex: Male
  Weight: 69 kg

DRUGS (4)
  1. MABTHERA [Suspect]
     Indication: DIFFUSE LARGE B-CELL LYMPHOMA
     Route: 042
     Dates: start: 20120427, end: 20120626
  2. DEXAVEN (POLAND) [Concomitant]
  3. SOLU-MEDROL [Concomitant]
  4. PENTAGLOBIN [Concomitant]

REACTIONS (1)
  - Death [Fatal]
